FAERS Safety Report 9181238 (Version 1)
Quarter: 2013Q1

REPORT INFORMATION
  Report Type: Spontaneous
  Country: US (occurrence: US)
  Receive Date: 20130322
  Receipt Date: 20130322
  Transmission Date: 20140127
  Serious: No
  Sender: FDA-Public Use
  Company Number: US-PFIZER INC-2013091685

PATIENT
  Age: 77 Year
  Sex: Female

DRUGS (19)
  1. SUTENT [Suspect]
     Indication: MALIGNANT NEOPLASM OF UNKNOWN PRIMARY SITE
     Dosage: 25 MG, UNK
     Dates: start: 20130121
  2. AMITIZA [Concomitant]
     Dosage: UNK
  3. ANUSOL-HC [Concomitant]
     Dosage: UNK
  4. ASPIRIN [Concomitant]
     Dosage: UNK
  5. CALCIUM + D [Concomitant]
     Dosage: UNK
  6. CARVEDILOL [Concomitant]
     Dosage: UNK
  7. CYMBALTA [Concomitant]
     Dosage: UNK
  8. ERGOCALCIFEROL [Concomitant]
     Dosage: UNK
  9. GABAPENTIN [Concomitant]
     Dosage: UNK
  10. LACTIC ACID [Concomitant]
     Dosage: UNK
  11. LASIX [Concomitant]
     Dosage: UNK
  12. LIPITOR [Concomitant]
     Dosage: UNK
  13. LISINOPRIL W/HYDROCHLOROTHIAZIDE [Concomitant]
     Dosage: UNK
  14. LORTAB [Concomitant]
     Dosage: UNK
  15. METFORMIN HYDROCHLORIDE [Concomitant]
     Dosage: UNK
  16. NORVASC [Concomitant]
     Dosage: UNK
  17. PRILOSEC [Concomitant]
     Dosage: UNK
  18. REMERON [Concomitant]
     Dosage: UNK
  19. TRIAMCINOLONE ACETONIDE [Concomitant]
     Dosage: UNK

REACTIONS (1)
  - Pruritus [Unknown]
